FAERS Safety Report 11828001 (Version 3)
Quarter: 2016Q1

REPORT INFORMATION
  Report Type: Spontaneous
  Country: JP (occurrence: JP)
  Receive Date: 20151211
  Receipt Date: 20160226
  Transmission Date: 20160525
  Serious: No
  Sender: FDA-Public Use
  Company Number: JP-009507513-1512JPN002539

PATIENT
  Age: 80 Year
  Sex: Female
  Weight: 43 kg

DRUGS (3)
  1. DORZOLAMIDE HYDROCHLORIDE. [Suspect]
     Active Substance: DORZOLAMIDE HYDROCHLORIDE
     Indication: OCULAR HYPERTENSION
     Dosage: UNK, TID, OU
     Route: 047
     Dates: start: 20150302, end: 20151106
  2. PIRENOXINE [Concomitant]
     Active Substance: PIRENOXINE
     Dosage: UNK
     Route: 047
     Dates: start: 20060214, end: 20151106
  3. DORZOLAMIDE HYDROCHLORIDE. [Suspect]
     Active Substance: DORZOLAMIDE HYDROCHLORIDE
     Dosage: UNK, TID, OU
     Route: 047
     Dates: start: 20151127, end: 20151127

REACTIONS (3)
  - Blepharitis [Recovered/Resolved]
  - Iritis [Recovered/Resolved]
  - Keratitis [Recovered/Resolved]

NARRATIVE: CASE EVENT DATE: 20151013
